FAERS Safety Report 19964544 (Version 1)
Quarter: 2021Q4

REPORT INFORMATION
  Report Type: Other
  Country: CA (occurrence: CA)
  Receive Date: 20211018
  Receipt Date: 20211018
  Transmission Date: 20220304
  Serious: Yes (Other)
  Sender: FDA-Public Use
  Company Number: CA-GLENMARK PHARMACEUTICALS-2021GMK052970

PATIENT

DRUGS (1)
  1. EZETIMIBE [Suspect]
     Active Substance: EZETIMIBE
     Indication: Low density lipoprotein increased
     Dosage: 10 MILLIGRAM, OD (1 EVERY 1 DAYS)
     Route: 048

REACTIONS (4)
  - Neoplasm malignant [Unknown]
  - Hypertension [Unknown]
  - Treatment failure [Unknown]
  - Low density lipoprotein increased [Unknown]
